FAERS Safety Report 4987262-7 (Version None)
Quarter: 2006Q2

REPORT INFORMATION
  Report Type: 
  Country: None (occurrence: None)
  Receive Date: 20060501
  Receipt Date: 20050112
  Transmission Date: 20061013
  Serious: Yes (Hospitalization)
  Sender: FDA-Public Use
  Company Number: US-MERCK-0501USA01847

PATIENT
  Age: 59 Year
  Sex: Female
  Weight: 77 kg

DRUGS (8)
  1. VIOXX [Suspect]
     Indication: OSTEOARTHRITIS
     Route: 048
     Dates: start: 19990901, end: 20010301
  2. VIOXX [Suspect]
     Route: 048
     Dates: start: 19990901, end: 20031231
  3. VIOXX [Suspect]
     Route: 048
     Dates: start: 19990901, end: 20010301
  4. VIOXX [Suspect]
     Route: 048
     Dates: start: 19990901, end: 20031231
  5. EFFEXOR [Concomitant]
     Indication: DEPRESSION
     Route: 065
  6. XANAX [Concomitant]
     Route: 065
  7. AMBIEN [Concomitant]
     Route: 065
  8. CALCIUM (UNSPECIFIED) [Concomitant]
     Route: 065

REACTIONS (10)
  - CARPAL TUNNEL SYNDROME [None]
  - CEREBRAL ARTERIOSCLEROSIS [None]
  - CHEST PAIN [None]
  - FATIGUE [None]
  - HEART RATE IRREGULAR [None]
  - HYPERCHOLESTEROLAEMIA [None]
  - HYPERTENSIVE HEART DISEASE [None]
  - PALPITATIONS [None]
  - ROSACEA [None]
  - TRANSIENT ISCHAEMIC ATTACK [None]
